FAERS Safety Report 10036334 (Version 1)
Quarter: 2014Q1

REPORT INFORMATION
  Report Type: Spontaneous
  Country: DK (occurrence: FI)
  Receive Date: 20140325
  Receipt Date: 20140325
  Transmission Date: 20141002
  Serious: Yes (Hospitalization, Disabling)
  Sender: FDA-Public Use
  Company Number: FI-FRI-1000065728

PATIENT
  Age: 15 Year
  Sex: Female

DRUGS (2)
  1. ESCITALOPRAM [Suspect]
     Indication: DEPRESSION
     Route: 048
     Dates: start: 20140216, end: 20140310
  2. MIRTAZAPINE [Concomitant]
     Indication: INSOMNIA
     Route: 048
     Dates: start: 20140207

REACTIONS (3)
  - Self injurious behaviour [Not Recovered/Not Resolved]
  - Aggression [Not Recovered/Not Resolved]
  - Off label use [Unknown]
